FAERS Safety Report 11516056 (Version 2)
Quarter: 2016Q3

REPORT INFORMATION
  Report Type: Spontaneous
  Country: US (occurrence: US)
  Receive Date: 20150917
  Receipt Date: 20160802
  Transmission Date: 20161109
  Serious: Yes (Other)
  Sender: FDA-Public Use
  Company Number: US-TAKEDA-2014TUS007300

PATIENT

DRUGS (12)
  1. SPIRONOLACTONE. [Concomitant]
     Active Substance: SPIRONOLACTONE
     Dosage: 25 MG, UNK
  2. ACTOS [Suspect]
     Active Substance: PIOGLITAZONE HYDROCHLORIDE
     Indication: TYPE 2 DIABETES MELLITUS
     Dosage: 15 MG, QD
     Route: 048
     Dates: start: 1997, end: 1998
  3. ACTOS [Suspect]
     Active Substance: PIOGLITAZONE HYDROCHLORIDE
     Dosage: UNK
     Route: 048
     Dates: start: 2004, end: 2012
  4. BENZTROPINE [Concomitant]
     Active Substance: BENZTROPINE
     Dosage: 10 MG, QD
  5. BICALUTAMIDE. [Concomitant]
     Active Substance: BICALUTAMIDE
     Dosage: 50 MG, QD
  6. LISINOPRIL. [Concomitant]
     Active Substance: LISINOPRIL
     Dosage: 20 MG, QD
  7. FISH OIL [Concomitant]
     Active Substance: FISH OIL
     Dosage: 360 MG, UNK
  8. HALOPERIDOL                        /00027402/ [Concomitant]
     Active Substance: HALOPERIDOL
     Dosage: 10 MG, BID
  9. SIMVASTATINE [Concomitant]
     Active Substance: SIMVASTATIN
     Dosage: 80 MG, QD
  10. ASPIRIN. [Concomitant]
     Active Substance: ASPIRIN
     Dosage: 81 MG, UNK
  11. FUROSEMIDE. [Concomitant]
     Active Substance: FUROSEMIDE
     Dosage: 40 MG, QD
  12. CARVEDILOL. [Concomitant]
     Active Substance: CARVEDILOL
     Dosage: 12.5 MG, BID

REACTIONS (2)
  - Bladder cancer [Unknown]
  - Myocardial infarction [Unknown]
